FAERS Safety Report 7170419-7 (Version None)
Quarter: 2010Q4

REPORT INFORMATION
  Report Type: 
  Country: None (occurrence: None)
  Receive Date: 20101217
  Receipt Date: 20101209
  Transmission Date: 20110411
  Serious: Yes (Other)
  Sender: FDA-Public Use
  Company Number: US-JNJCH-2010028346

PATIENT
  Sex: Male
  Weight: 87.5 kg

DRUGS (8)
  1. BENADRYL [Suspect]
     Indication: PARKINSON'S DISEASE
     Route: 048
  2. MIRAPEX [Concomitant]
     Indication: PARKINSON'S DISEASE
     Dosage: TEXT:UNKNOWN
     Route: 065
  3. MIRAPEX [Concomitant]
     Indication: BLOOD TRIGLYCERIDES INCREASED
  4. MIRAPEX [Concomitant]
     Indication: URINARY TRACT INFECTION
  5. PLAVIX [Concomitant]
     Indication: BLOOD TRIGLYCERIDES INCREASED
     Dosage: TEXT:UNKNOWN
     Route: 065
  6. ANTIBIOTICS [Concomitant]
     Indication: URINARY TRACT INFECTION
     Dosage: TEXT:UNKNOWN
     Route: 065
  7. WELLBUTRIN XL [Concomitant]
     Dosage: TEXT:UNKNOWN
     Route: 065
  8. TAMSULOSIN [Concomitant]
     Dosage: TEXT:UNKNOWN
     Route: 065

REACTIONS (7)
  - ALTERED VISUAL DEPTH PERCEPTION [None]
  - BLINDNESS UNILATERAL [None]
  - INTENTIONAL OVERDOSE [None]
  - OFF LABEL USE [None]
  - THERAPEUTIC RESPONSE UNEXPECTED [None]
  - VISION BLURRED [None]
  - VISUAL ACUITY REDUCED [None]
